FAERS Safety Report 24802525 (Version 1)
Quarter: 2025Q1

REPORT INFORMATION
  Report Type: Spontaneous
  Country: US (occurrence: US)
  Receive Date: 20250103
  Receipt Date: 20250103
  Transmission Date: 20250409
  Serious: No
  Sender: ROCHE
  Company Number: US-ROCHE-10000170590

PATIENT
  Sex: Female
  Weight: 96.16 kg

DRUGS (2)
  1. ACTEMRA [Suspect]
     Active Substance: TOCILIZUMAB
     Indication: Systemic scleroderma
     Dosage: ONGOING
     Route: 058
     Dates: start: 202411
  2. ACTEMRA [Suspect]
     Active Substance: TOCILIZUMAB
     Indication: Muscle atrophy

REACTIONS (1)
  - Weight increased [Unknown]
